FAERS Safety Report 10409824 (Version 1)
Quarter: 2014Q2

REPORT INFORMATION
  Report Type: Spontaneous
  Country: US (occurrence: None)
  Receive Date: 20140604
  Receipt Date: 20140604
  Transmission Date: 20141212
  Serious: No
  Sender: FDA-Public Use
  Company Number: 163-POMAL-14043590

PATIENT
  Age: 78 Year
  Sex: Female

DRUGS (1)
  1. POMALYST (POMALIDOMIDE) (3 MILLIGRAM, CAPSULES) [Suspect]
     Indication: PLASMA CELL MYELOMA
     Dosage: 21 IN 28 D
     Route: 048
     Dates: start: 201403, end: 2014

REACTIONS (4)
  - Wheezing [None]
  - Oropharyngeal pain [None]
  - Pruritus [None]
  - Constipation [None]
